FAERS Safety Report 6088501-4 (Version None)
Quarter: 2009Q1

REPORT INFORMATION
  Report Type: 
  Country: None (occurrence: None)
  Receive Date: 20090224
  Receipt Date: 20090220
  Transmission Date: 20090719
  Serious: Yes (Hospitalization)
  Sender: FDA-Public Use
  Company Number: FR-WYE-G03161709

PATIENT
  Age: 17 Year
  Sex: Female

DRUGS (6)
  1. RHINADVIL [Suspect]
     Indication: NASOPHARYNGITIS
     Route: 048
     Dates: start: 20090130, end: 20090131
  2. TERCIAN [Concomitant]
     Dosage: UNKNOWN
     Route: 048
  3. STILNOX [Concomitant]
     Dosage: UNKNOWN
     Route: 048
  4. SEROPRAM [Concomitant]
     Dosage: UNKNOWN
     Route: 048
  5. IBUPROFEN [Suspect]
     Indication: NASOPHARYNGITIS
     Dosage: LAST INTAKE : 3 TABLETS WITHIN A DAY
     Route: 048
     Dates: start: 20090101, end: 20090129
  6. STEDIRIL [Suspect]
     Dosage: UNKNOWN
     Route: 048

REACTIONS (4)
  - COLITIS ISCHAEMIC [None]
  - MALAISE [None]
  - NAUSEA [None]
  - VOMITING [None]
